FAERS Safety Report 20649229 (Version 1)
Quarter: 2022Q1

REPORT INFORMATION
  Report Type: Report from Study
  Country: US (occurrence: US)
  Receive Date: 20220329
  Receipt Date: 20220329
  Transmission Date: 20220423
  Serious: Yes (Other)
  Sender: FDA-Public Use
  Company Number: US-BoehringerIngelheim-2021-BI-120283

PATIENT
  Age: 66 Year
  Sex: Female

DRUGS (1)
  1. OFEV [Suspect]
     Active Substance: NINTEDANIB
     Indication: Idiopathic pulmonary fibrosis
     Route: 048
     Dates: start: 20210727

REACTIONS (26)
  - Cerebral haemorrhage [Unknown]
  - Hepatic cirrhosis [Unknown]
  - Myalgia [Unknown]
  - Abdominal pain upper [Unknown]
  - Cerebral congestion [Unknown]
  - Decreased appetite [Unknown]
  - Diarrhoea [Recovering/Resolving]
  - Nausea [Unknown]
  - Abdominal pain [Unknown]
  - Gastric disorder [Unknown]
  - Somnolence [Unknown]
  - Fatigue [Unknown]
  - Feeling abnormal [Unknown]
  - Blood pressure abnormal [Unknown]
  - Headache [Unknown]
  - Hypertension [Recovered/Resolved]
  - Fall [Unknown]
  - Concussion [Unknown]
  - Intentional dose omission [Unknown]
  - Memory impairment [Unknown]
  - Bronchitis [Unknown]
  - Abdominal distension [Unknown]
  - Flatulence [Unknown]
  - Abdominal pain upper [Unknown]
  - Appetite disorder [Unknown]
  - Thinking abnormal [Unknown]

NARRATIVE: CASE EVENT DATE: 20210601
